FAERS Safety Report 9960972 (Version 1)
Quarter: 2014Q1

REPORT INFORMATION
  Report Type: Spontaneous
  Country: US (occurrence: None)
  Receive Date: 20140127
  Receipt Date: 20140127
  Transmission Date: 20141002
  Serious: Yes (Life-Threatening)
  Sender: FDA-Public Use
  Company Number: 1284547

PATIENT
  Age: 21 Year
  Sex: Female

DRUGS (1)
  1. ALTEPLASE [Suspect]
     Indication: ISCHAEMIC STROKE
     Dosage: THERAPY DURATION :90 MINS (20 MG, 1 IN 1 D), INTRA-ARTERIAL
     Route: 013

REACTIONS (2)
  - Brain herniation [None]
  - Brain oedema [None]
